FAERS Safety Report 8422271-7 (Version None)
Quarter: 2012Q2

REPORT INFORMATION
  Report Type: 
  Country: None (occurrence: None)
  Receive Date: 20120608
  Receipt Date: 20120531
  Transmission Date: 20120825
  Serious: Yes (Other)
  Sender: FDA-Public Use
  Company Number: CA-ROCHE-1041775

PATIENT
  Sex: Female
  Weight: 74.91 kg

DRUGS (7)
  1. ACTEMRA [Suspect]
     Indication: RHEUMATOID ARTHRITIS
     Route: 042
     Dates: start: 20110627, end: 20110825
  2. OXYCODONE HCL [Concomitant]
  3. ACTONEL [Concomitant]
  4. ACTEMRA [Suspect]
     Route: 042
     Dates: start: 20110825
  5. PREDNISONE TAB [Concomitant]
  6. CELEBREX [Concomitant]
  7. TYLENOL W/ CODEINE NO. 3 [Concomitant]

REACTIONS (4)
  - DEPRESSION [None]
  - FIBROMYALGIA [None]
  - SUICIDAL IDEATION [None]
  - BREAST CYST [None]
